FAERS Safety Report 5633718-3 (Version None)
Quarter: 2008Q1

REPORT INFORMATION
  Report Type: 
  Country: None (occurrence: None)
  Receive Date: 20080131
  Receipt Date: 20071114
  Transmission Date: 20080703
  Serious: No
  Sender: FDA-Public Use
  Company Number: 163-21880-07100678

PATIENT
  Age: 74 Year
  Sex: Male

DRUGS (3)
  1. REVLIMID [Suspect]
     Indication: MULTIPLE MYELOMA
     Dosage: 20 MG, DAILY, ORAL ; 10 MG, 1 IN 1 D, ORAL
     Route: 048
     Dates: start: 20070625, end: 20070901
  2. REVLIMID [Suspect]
     Indication: MULTIPLE MYELOMA
     Dosage: 20 MG, DAILY, ORAL ; 10 MG, 1 IN 1 D, ORAL
     Route: 048
     Dates: start: 20071011, end: 20071001
  3. DEXAMETHASONE TAB [Concomitant]

REACTIONS (5)
  - ALOPECIA [None]
  - CONSTIPATION [None]
  - DRUG INEFFECTIVE [None]
  - PERSONALITY CHANGE [None]
  - TREMOR [None]
